FAERS Safety Report 5555275-2 (Version None)
Quarter: 2007Q4

REPORT INFORMATION
  Report Type: 
  Country: None (occurrence: None)
  Receive Date: 20071213
  Receipt Date: 20070813
  Transmission Date: 20080405
  Serious: No
  Sender: FDA-Public Use
  Company Number: US-AMGEN-KDL235798

PATIENT
  Sex: Female
  Weight: 49.5 kg

DRUGS (6)
  1. ENBREL [Suspect]
     Indication: RHEUMATOID ARTHRITIS
     Route: 058
     Dates: start: 20070101
  2. HYDROXYCHLOROQUINE SULFATE [Concomitant]
     Dates: start: 20040914
  3. SULFASALAZINE [Concomitant]
     Dates: start: 20040712
  4. ARAVA [Concomitant]
     Dates: start: 20041116
  5. FOSAMAX [Concomitant]
     Dates: start: 20050902
  6. ASPIRIN [Concomitant]
     Dates: start: 20070119

REACTIONS (1)
  - INTERVERTEBRAL DISC DEGENERATION [None]
